FAERS Safety Report 25617370 (Version 1)
Quarter: 2025Q3

REPORT INFORMATION
  Report Type: Spontaneous
  Country: EU (occurrence: EU)
  Receive Date: 20250729
  Receipt Date: 20250729
  Transmission Date: 20251021
  Serious: Yes (Hospitalization)
  Sender: BRACCO
  Company Number: None

PATIENT
  Age: 54 Year
  Sex: Female

DRUGS (1)
  1. IOMERON [Suspect]
     Active Substance: IOMEPROL
     Indication: Computerised tomogram abdomen
     Route: 042
     Dates: start: 20250710, end: 20250710

REACTIONS (5)
  - Presyncope [Recovering/Resolving]
  - Hyperhidrosis [Recovering/Resolving]
  - Anal sphincter atony [Recovering/Resolving]
  - Bladder sphincter atony [Recovering/Resolving]
  - Hypotension [Recovering/Resolving]

NARRATIVE: CASE EVENT DATE: 20250710
